FAERS Safety Report 5282087-X (Version None)
Quarter: 2007Q1

REPORT INFORMATION
  Report Type: 
  Country: None (occurrence: None)
  Receive Date: 20070330
  Receipt Date: 20070319
  Transmission Date: 20070707
  Serious: Yes (Other)
  Sender: FDA-Public Use
  Company Number: US-PFIZER INC-2007009736

PATIENT
  Sex: Male
  Weight: 80.3 kg

DRUGS (6)
  1. LYRICA [Suspect]
     Indication: OEDEMA
  2. RELAFEN [Concomitant]
  3. TRAZODONE HCL [Concomitant]
  4. HYDROCODONE BITARTRATE + ACETAMINOPHEN [Concomitant]
  5. LEXAPRO [Concomitant]
  6. SOMA [Concomitant]

REACTIONS (8)
  - BACK PAIN [None]
  - BLOOD PRESSURE INCREASED [None]
  - GENERALISED OEDEMA [None]
  - HYPERSENSITIVITY [None]
  - INSOMNIA [None]
  - OEDEMA PERIPHERAL [None]
  - ROTATOR CUFF SYNDROME [None]
  - WEIGHT INCREASED [None]
